FAERS Safety Report 4497063-4 (Version None)
Quarter: 2004Q3

REPORT INFORMATION
  Report Type: 
  Country: None (occurrence: None)
  Receive Date: 20040927
  Receipt Date: 20040616
  Transmission Date: 20050211
  Serious: No
  Sender: FDA-Public Use
  Company Number: USA040466164

PATIENT
  Age: 36 Year
  Sex: Female
  Weight: 63 kg

DRUGS (2)
  1. STRATTERA [Suspect]
     Indication: ATTENTION DEFICIT/HYPERACTIVITY DISORDER
     Dosage: 40 MG/TWICE DAY
     Dates: start: 20040422, end: 20040427
  2. EFFEXOR XR [Concomitant]

REACTIONS (4)
  - NASOPHARYNGITIS [None]
  - PHARYNGOLARYNGEAL PAIN [None]
  - PRURITUS [None]
  - RASH [None]
